FAERS Safety Report 14383796 (Version 1)
Quarter: 2018Q1

REPORT INFORMATION
  Report Type: Spontaneous
  Country: US (occurrence: US)
  Receive Date: 20180115
  Receipt Date: 20180115
  Transmission Date: 20180509
  Serious: Yes (Hospitalization)
  Sender: FDA-Public Use
  Company Number: US-BEH-2018086684

PATIENT
  Age: 49 Year
  Sex: Female

DRUGS (10)
  1. FLONASE [Concomitant]
     Active Substance: FLUTICASONE PROPIONATE
  2. VITAMIN E                          /00110501/ [Concomitant]
     Active Substance: TOCOPHEROL
  3. HIZENTRA [Suspect]
     Active Substance: HUMAN IMMUNOGLOBULIN G
     Dosage: UNK
     Route: 058
  4. HIZENTRA [Suspect]
     Active Substance: HUMAN IMMUNOGLOBULIN G
     Indication: IMMUNODEFICIENCY COMMON VARIABLE
     Dosage: 14 G, UNK
     Route: 058
  5. LORATADINE. [Concomitant]
     Active Substance: LORATADINE
  6. VITAMIN D3 [Concomitant]
     Active Substance: CHOLECALCIFEROL
  7. B-COMPLEX                          /00003501/ [Concomitant]
     Active Substance: CYANOCOBALAMIN\DEXPANTHENOL\NIACINAMIDE\PYRIDOXINE HYDROCHLORIDE\RIBOFLAVIN 5^-PHOSPHATE SODIUM\THIAMINE HYDROCHLORIDE\VITAMIN B COMPLEX
  8. SINGULAIR [Concomitant]
     Active Substance: MONTELUKAST SODIUM
  9. GLUCOSAMINE + CHONDROITIN WITH MSM /05199601/ [Concomitant]
  10. AZELASTINE. [Concomitant]
     Active Substance: AZELASTINE HYDROCHLORIDE

REACTIONS (2)
  - Nephrolithiasis [Unknown]
  - Sinusitis [Unknown]

NARRATIVE: CASE EVENT DATE: 20171213
